FAERS Safety Report 9053391 (Version 2)
Quarter: 2013Q1

REPORT INFORMATION
  Report Type: Report from Study
  Country: US (occurrence: US)
  Receive Date: 20130208
  Receipt Date: 20130218
  Transmission Date: 20140127
  Serious: Yes (Hospitalization)
  Sender: FDA-Public Use
  Company Number: US-BAYER-2013-012806

PATIENT
  Age: 56 Year
  Sex: Male
  Weight: 90.25 kg

DRUGS (12)
  1. SORAFENIB (RAF KINASE INHIBITOR) [Suspect]
     Indication: HEPATOCELLULAR CARCINOMA
     Dosage: 400 MG, BID
     Route: 048
     Dates: start: 20130118, end: 20130123
  2. CIPRO [Concomitant]
     Dosage: 500 MG, BID
     Dates: start: 20130123
  3. DAPTOMYCIN [Concomitant]
     Dosage: 360 MG, QD
     Route: 042
     Dates: start: 20130123
  4. PRILOSEC [Concomitant]
     Dosage: 40 MG, QD
     Dates: start: 2011
  5. FUROSEMIDE [FUROSEMIDE] [Concomitant]
     Dosage: 20 MG, PRN
     Route: 048
     Dates: start: 2011
  6. WELLBUTRIN [Concomitant]
     Dosage: 75 MG, BID
     Route: 048
     Dates: start: 2011
  7. KCL [Concomitant]
     Dosage: 10 MEQ, QD
     Route: 048
     Dates: start: 2010
  8. MVI [VITAMINS NOS] [Concomitant]
     Dosage: 1 DF, QD
     Route: 048
  9. XANAX [Concomitant]
     Dosage: 0.25 MG, QID PRN
     Route: 048
     Dates: start: 2012
  10. LISINOPRIL [Concomitant]
     Dosage: 20 MG, QD
     Route: 048
     Dates: start: 2012
  11. AMBIEN [Concomitant]
     Dosage: 10 MG, HS PRN
     Route: 048
     Dates: start: 2012
  12. CARVEDILOL [Concomitant]
     Dosage: 3.125 MG, QD
     Route: 048
     Dates: start: 201301

REACTIONS (3)
  - Cellulitis [None]
  - Confusional state [None]
  - Groin infection [None]
